FAERS Safety Report 9039527 (Version 2)
Quarter: 2013Q1

REPORT INFORMATION
  Report Type: Spontaneous
  Country: US (occurrence: US)
  Receive Date: 20130129
  Receipt Date: 20130325
  Transmission Date: 20140127
  Serious: Yes (Other)
  Sender: FDA-Public Use
  Company Number: US-PFIZER INC-2013034175

PATIENT
  Age: 57 Year
  Sex: Male
  Weight: 121 kg

DRUGS (24)
  1. NEURONTIN [Suspect]
     Indication: NEURALGIA
     Dosage: 600 MG, 4X/DAY
     Route: 048
  2. NEURONTIN [Suspect]
     Dosage: 600 MG, 3X/DAY
     Route: 048
     Dates: start: 20121101
  3. LANTUS [Concomitant]
     Indication: DIABETES MELLITUS
     Dosage: 60 IU/ML, DAILY
  4. LANTUS [Concomitant]
     Dosage: 30 IU/ML, 2X/DAY
     Route: 058
     Dates: start: 20121101
  5. METFORMIN [Concomitant]
     Indication: DIABETES MELLITUS
     Dosage: 850 MG, 2X/DAY
     Route: 048
     Dates: start: 20120507
  6. JANUVIA [Concomitant]
     Indication: DIABETES MELLITUS
     Dosage: 100 MG, 1X/DAY
     Route: 048
     Dates: end: 20121031
  7. GLYBURIDE [Concomitant]
     Indication: DIABETES MELLITUS
     Dosage: 10 MG, 1X/DAY
     Route: 048
  8. GLYBURIDE [Concomitant]
     Dosage: 5 MG, 1X/DAY
     Route: 048
     Dates: start: 20121031
  9. PLAVIX [Concomitant]
     Indication: BLOOD CHOLESTEROL ABNORMAL
     Dosage: 75 MG, 1X/DAY
     Route: 048
     Dates: start: 20121101
  10. LOVASTATIN [Concomitant]
     Indication: BLOOD CHOLESTEROL INCREASED
     Dosage: 40 MG, 2X/DAY
  11. LOVASTATIN [Concomitant]
     Dosage: 40 MG, 1X/DAY
     Route: 048
     Dates: start: 20120507
  12. CARVEDILOL [Concomitant]
     Indication: CARDIAC DISORDER
     Dosage: 25 MG, 2X/DAY
     Route: 048
     Dates: start: 20120913
  13. AMLODIPINE [Concomitant]
     Indication: CARDIAC DISORDER
     Dosage: 10 MG, 1X/DAY
     Route: 048
     Dates: start: 20121031
  14. AMLODIPINE [Concomitant]
     Indication: HYPERTENSION
  15. LISINOPRIL [Concomitant]
     Indication: CARDIAC DISORDER
     Dosage: 20 MG, 2X/DAY
     Route: 048
     Dates: start: 20121003
  16. HYDROCODONE W/ACETAMINOPHEN [Concomitant]
     Indication: PAIN
     Dosage: .5 MG-325 MG TABLET, 1 TABLET EVERY FOUR TO SIX HOURS
     Route: 048
     Dates: start: 20121031
  17. FUROSEMIDE [Concomitant]
     Indication: CARDIAC FAILURE
     Dosage: 40 MG, TAKE 1 TO 2 TAB BY MOUTH EVERY MORNING ALTERNATE 1 EVERY OTHER DAY WITH 2 EVERY OTHER DAY
     Route: 048
     Dates: start: 20120907
  18. GEMFIBROZIL [Concomitant]
     Indication: BLOOD CHOLESTEROL INCREASED
     Dosage: 600 MG, 2X/DAY
     Route: 048
     Dates: start: 20110504
  19. K-DUR [Concomitant]
     Dosage: 10 MEQ, 1X/DAY
     Route: 048
     Dates: start: 20120720
  20. OXYGEN [Concomitant]
     Indication: HYPOXIA
     Dosage: 2 LPMS AS DIRECTED
     Dates: start: 20120720
  21. OXYGEN [Concomitant]
     Indication: CARDIAC FAILURE CONGESTIVE
  22. OXYGEN [Concomitant]
     Indication: CHRONIC OBSTRUCTIVE PULMONARY DISEASE
  23. ALBUTEROL SULFATE [Concomitant]
     Dosage: 2.5 MG/3 ML (0.083 %), 3 MILLILITERS INHALATION EVERY THREE TO FOUR HOURS AS NEED
     Dates: start: 20120720
  24. PROMETHAZINE HYDROCHLORIDE [Concomitant]
     Indication: NAUSEA
     Dosage: 25 MG, 4X/DAY, AS NEEDED
     Route: 048
     Dates: start: 20121031

REACTIONS (2)
  - Pneumonia [Unknown]
  - Malaise [Unknown]
